FAERS Safety Report 13792805 (Version 2)
Quarter: 2017Q3

REPORT INFORMATION
  Report Type: Report from Study
  Country: None (occurrence: AU)
  Receive Date: 20170726
  Receipt Date: 20170728
  Transmission Date: 20171127
  Serious: Yes (Death, Hospitalization)
  Sender: FDA-Public Use
  Company Number: AU-ABBVIE-17K-008-2049891-00

PATIENT
  Sex: Male

DRUGS (1)
  1. HUMIRA [Suspect]
     Active Substance: ADALIMUMAB
     Indication: PSORIATIC ARTHROPATHY
     Route: 058
     Dates: start: 20170504

REACTIONS (3)
  - Malignant neoplasm of pleura metastatic [Fatal]
  - Lung cancer metastatic [Fatal]
  - Dyspnoea [Fatal]

NARRATIVE: CASE EVENT DATE: 2017
